FAERS Safety Report 17930486 (Version 1)
Quarter: 2020Q2

REPORT INFORMATION
  Report Type: Report from Study
  Country: US (occurrence: US)
  Receive Date: 20200623
  Receipt Date: 20200623
  Transmission Date: 20200714
  Serious: No
  Sender: FDA-Public Use
  Company Number: NVSC2018US005901

PATIENT
  Sex: Male

DRUGS (2)
  1. DORZOLAMIDE [Suspect]
     Active Substance: DORZOLAMIDE
     Indication: PRODUCT USED FOR UNKNOWN INDICATION
     Route: 065
  2. AZOPT [Concomitant]
     Active Substance: BRINZOLAMIDE
     Indication: INTRAOCULAR PRESSURE FLUCTUATION
     Route: 065

REACTIONS (1)
  - Treatment failure [Unknown]
